FAERS Safety Report 9628589 (Version 7)
Quarter: 2013Q4

REPORT INFORMATION
  Report Type: Spontaneous
  Country: US (occurrence: US)
  Receive Date: 20131017
  Receipt Date: 20131212
  Transmission Date: 20140711
  Serious: Yes (Life-Threatening, Hospitalization)
  Sender: FDA-Public Use
  Company Number: US-JNJFOC-20131006165

PATIENT
  Age: 83 Year
  Sex: Male

DRUGS (6)
  1. XARELTO [Suspect]
     Indication: PULMONARY EMBOLISM
     Route: 048
     Dates: start: 20130820, end: 20130921
  2. XARELTO [Suspect]
     Indication: DEEP VEIN THROMBOSIS
     Route: 048
     Dates: start: 20130820, end: 20130921
  3. ASPIRIN [Concomitant]
     Route: 065
  4. SYNTHROID [Concomitant]
     Route: 065
  5. CALCIFEROL [Concomitant]
     Route: 065
  6. PROTONIX [Concomitant]
     Route: 065

REACTIONS (2)
  - Splenic haematoma [Recovered/Resolved]
  - Splenic rupture [Recovered/Resolved]
